FAERS Safety Report 5007381-9 (Version None)
Quarter: 2006Q2

REPORT INFORMATION
  Report Type: 
  Country: None (occurrence: None)
  Receive Date: 20060518
  Receipt Date: 20060518
  Transmission Date: 20061013
  Serious: Yes (Life-Threatening, Hospitalization)
  Sender: FDA-Public Use
  Company Number: None

PATIENT
  Age: 8 Year
  Sex: Female
  Weight: 23.587 kg

DRUGS (1)
  1. TYLENOL TAB [Suspect]
     Indication: PYREXIA
     Dosage: 1 TABLET  2 TO 3 TIMES DAY PO
     Route: 048
     Dates: start: 20060318, end: 20060322

REACTIONS (1)
  - HEPATIC FAILURE [None]
